FAERS Safety Report 5138947-3 (Version None)
Quarter: 2006Q4

REPORT INFORMATION
  Report Type: 
  Country: None (occurrence: None)
  Receive Date: 20061030
  Receipt Date: 20060512
  Transmission Date: 20070319
  Serious: No
  Sender: FDA-Public Use
  Company Number: 2004SP000145

PATIENT
  Age: 70 Year
  Sex: Male

DRUGS (9)
  1. ADVAIR HFA [Suspect]
     Indication: DRUG USE FOR UNKNOWN INDICATION
     Route: 055
     Dates: start: 20040623
  2. XOPENEX [Suspect]
     Indication: DRUG USE FOR UNKNOWN INDICATION
     Dosage: .5MGML TWICE PER DAY
     Route: 055
     Dates: start: 20040623
  3. ZOCOR [Concomitant]
  4. DIOVAN [Concomitant]
  5. COUMADIN [Concomitant]
  6. MAVIK [Concomitant]
  7. NORVASC [Concomitant]
  8. DIURETIC [Concomitant]
  9. RESTORIL [Concomitant]

REACTIONS (1)
  - ABNORMAL DREAMS [None]
